FAERS Safety Report 21239573 (Version 1)
Quarter: 2022Q3

REPORT INFORMATION
  Report Type: Spontaneous
  Country: US (occurrence: None)
  Receive Date: 20220820
  Receipt Date: 20220820
  Transmission Date: 20221026
  Serious: Yes (Disabling)
  Sender: FDA-Public Use
  Company Number: None

PATIENT
  Age: 69 Year
  Sex: Female
  Weight: 128.25 kg

DRUGS (20)
  1. PAXLOVID [Suspect]
     Active Substance: NIRMATRELVIR\RITONAVIR
     Indication: COVID-19
     Dosage: 30 TABLETS TWICE A DAY ORAL?
     Route: 048
     Dates: start: 20220803, end: 20220808
  2. PLAVIX [Concomitant]
     Active Substance: CLOPIDOGREL BISULFATE
  3. DIOVAN HCT [Concomitant]
     Active Substance: HYDROCHLOROTHIAZIDE\VALSARTAN
  4. CRESTOR [Concomitant]
     Active Substance: ROSUVASTATIN CALCIUM
  5. ASPIRIN [Concomitant]
     Active Substance: ASPIRIN
  6. VITAMIN D [Concomitant]
     Active Substance: VITAMIN D NOS
  7. GLIPIZIDE [Concomitant]
     Active Substance: GLIPIZIDE
  8. HUMALOG [Concomitant]
     Active Substance: INSULIN LISPRO
  9. Lantis Insulin [Concomitant]
  10. SINGULAIR [Concomitant]
     Active Substance: MONTELUKAST SODIUM
  11. LEVOTHYROXINE [Concomitant]
     Active Substance: LEVOTHYROXINE
  12. FLONASE [Concomitant]
     Active Substance: FLUTICASONE PROPIONATE
  13. ZYRTEC [Concomitant]
     Active Substance: CETIRIZINE HYDROCHLORIDE
  14. ALBUTEROL [Concomitant]
     Active Substance: ALBUTEROL
  15. FLUCONAZOLE [Concomitant]
     Active Substance: FLUCONAZOLE
  16. TYLENOL [Concomitant]
     Active Substance: ACETAMINOPHEN
  17. ACETAMINOPHEN\DIPHENHYDRAMINE [Concomitant]
     Active Substance: ACETAMINOPHEN\DIPHENHYDRAMINE
  18. MUCINEX [Concomitant]
     Active Substance: GUAIFENESIN
  19. Nose spray [Concomitant]
  20. Lose dose aspirin [Concomitant]

REACTIONS (12)
  - Fatigue [None]
  - Loss of personal independence in daily activities [None]
  - Chills [None]
  - Headache [None]
  - Feeding disorder [None]
  - Productive cough [None]
  - Nasal congestion [None]
  - Abdominal pain upper [None]
  - Diarrhoea [None]
  - Constipation [None]
  - Urinary incontinence [None]
  - Condition aggravated [None]

NARRATIVE: CASE EVENT DATE: 20220803
